FAERS Safety Report 9154579 (Version 1)
Quarter: 2013Q1

REPORT INFORMATION
  Report Type: Spontaneous
  Country: US (occurrence: None)
  Receive Date: 20130215
  Receipt Date: 20130215
  Transmission Date: 20140127
  Serious: Yes (Hospitalization)
  Sender: FDA-Public Use
  Company Number: 1302-191

PATIENT
  Age: 90 Year
  Sex: Female
  Weight: 53.52 kg

DRUGS (1)
  1. EYLEA (AFLIBERCEPT) (INJECTION) (AFLIBERCEPT) [Suspect]
     Indication: MACULAR DEGENERATION
     Dosage: 1 IN 1 M, INTRAVITREAL
     Dates: start: 2012

REACTIONS (3)
  - Transient ischaemic attack [None]
  - Eye pain [None]
  - Visual impairment [None]
